FAERS Safety Report 25478710 (Version 1)
Quarter: 2025Q2

REPORT INFORMATION
  Report Type: Spontaneous
  Country: CA (occurrence: CA)
  Receive Date: 20250625
  Receipt Date: 20250625
  Transmission Date: 20250716
  Serious: Yes (Other)
  Sender: TEVA
  Company Number: CA-TEVA-VS-3345653

PATIENT
  Age: 33 Year
  Sex: Female

DRUGS (1)
  1. METHOTREXATE SODIUM [Suspect]
     Active Substance: METHOTREXATE SODIUM
     Indication: Crohn^s disease
     Route: 058

REACTIONS (4)
  - Mass [Unknown]
  - Off label use [Unknown]
  - Arthralgia [Unknown]
  - Condition aggravated [Unknown]
